FAERS Safety Report 4978708-9 (Version None)
Quarter: 2006Q2

REPORT INFORMATION
  Report Type: 
  Country: None (occurrence: None)
  Receive Date: 20060420
  Receipt Date: 20060411
  Transmission Date: 20061013
  Serious: Yes (Hospitalization)
  Sender: FDA-Public Use
  Company Number: AU-MERCK-0604AUS00067

PATIENT
  Age: 80 Year
  Sex: Female

DRUGS (13)
  1. FOSAMAX [Suspect]
     Indication: OSTEOPOROSIS
     Route: 048
     Dates: end: 20060201
  2. FOSAMAX [Suspect]
     Route: 048
     Dates: start: 20060201, end: 20060201
  3. FOSAMAX [Suspect]
     Route: 048
     Dates: start: 20060201, end: 20060301
  4. FOSAMAX [Suspect]
     Route: 048
     Dates: start: 20060301, end: 20060409
  5. FLUTICASONE PROPIONATE AND SALMETEROL XINAFOATE [Concomitant]
     Indication: CHRONIC OBSTRUCTIVE PULMONARY DISEASE
     Route: 055
  6. TIOTROPIUM BROMIDE [Concomitant]
     Indication: CHRONIC OBSTRUCTIVE PULMONARY DISEASE
     Route: 055
  7. RABEPRAZOLE SODIUM [Concomitant]
     Route: 065
  8. CRANBERRY [Concomitant]
     Indication: PROPHYLAXIS
     Route: 065
  9. CALCIUM CITRATE [Concomitant]
     Indication: OSTEOPOROSIS
     Route: 065
     Dates: start: 20050401
  10. TETRACYCLINE PHOSPHATE COMPLEX [Concomitant]
     Indication: ROSACEA
     Route: 065
  11. ERGOCALCIFEROL [Concomitant]
     Route: 065
     Dates: start: 20051201
  12. OXYGEN [Concomitant]
     Indication: CHRONIC OBSTRUCTIVE PULMONARY DISEASE
     Route: 055
     Dates: start: 20041201, end: 20051101
  13. OXYGEN [Concomitant]
     Route: 055
     Dates: start: 20051101

REACTIONS (6)
  - CHRONIC OBSTRUCTIVE PULMONARY DISEASE [None]
  - DRUG ADMINISTRATION ERROR [None]
  - FEELING ABNORMAL [None]
  - HYPERTENSION [None]
  - LUMBAR VERTEBRAL FRACTURE [None]
  - SPINAL COMPRESSION FRACTURE [None]
